FAERS Safety Report 5509924-5 (Version None)
Quarter: 2007Q4

REPORT INFORMATION
  Report Type: 
  Country: None (occurrence: None)
  Receive Date: 20071106
  Receipt Date: 20071023
  Transmission Date: 20080405
  Serious: Yes (Hospitalization, Disabling)
  Sender: FDA-Public Use
  Company Number: 2004EU001450

PATIENT
  Age: 32 Year
  Sex: Male

DRUGS (3)
  1. TACROLIMUS [Suspect]
     Indication: RENAL AND PANCREAS TRANSPLANT
     Dosage: 2 MG, UID/QD, ORAL
     Route: 048
     Dates: start: 20031031
  2. SIROLIMUS (SIROLIMUS) [Suspect]
     Indication: RENAL AND PANCREAS TRANSPLANT
     Dosage: 1 MG, UID/QD, ORAL
     Route: 048
     Dates: start: 20031031
  3. PREDNISONE [Suspect]
     Indication: RENAL AND PANCREAS TRANSPLANT
     Dosage: 5 MG, UID/QD, PO
     Route: 048

REACTIONS (8)
  - CHOLANGITIS ACUTE [None]
  - ESCHERICHIA INFECTION [None]
  - GANGRENE [None]
  - KLEBSIELLA INFECTION [None]
  - LOCALISED INFECTION [None]
  - OSTEOMYELITIS [None]
  - RENAL FAILURE ACUTE [None]
  - TOE AMPUTATION [None]
